FAERS Safety Report 14074898 (Version 1)
Quarter: 2017Q4

REPORT INFORMATION
  Report Type: Spontaneous
  Country: US (occurrence: US)
  Receive Date: 20171011
  Receipt Date: 20171011
  Transmission Date: 20180321
  Serious: No
  Sender: FDA-Public Use
  Company Number: US-TARO-2017TAR00577

PATIENT
  Sex: Female

DRUGS (1)
  1. METRONIDAZOLE GEL USP, 1% [Suspect]
     Active Substance: METRONIDAZOLE
     Route: 061

REACTIONS (2)
  - Pain [Unknown]
  - Product quality issue [Unknown]
